FAERS Safety Report 8222343-6 (Version None)
Quarter: 2012Q1

REPORT INFORMATION
  Report Type: 
  Country: None (occurrence: None)
  Receive Date: 20120320
  Receipt Date: 20120312
  Transmission Date: 20120608
  Serious: Yes (Hospitalization)
  Sender: FDA-Public Use
  Company Number: JP-BRISTOL-MYERS SQUIBB COMPANY-14545537

PATIENT
  Age: 63 Year
  Sex: Male

DRUGS (4)
  1. BARACLUDE [Suspect]
     Indication: HEPATITIS B
     Dosage: 36 MONTHS AGO
     Route: 048
     Dates: start: 20061219
  2. ENALAPRIL MALEATE [Concomitant]
     Route: 048
     Dates: start: 20061219
  3. FAMOTIDINE [Concomitant]
     Route: 048
     Dates: start: 20061219
  4. GASTROM [Concomitant]
     Route: 048
     Dates: start: 20061219

REACTIONS (1)
  - HEPATIC NEOPLASM MALIGNANT [None]
